FAERS Safety Report 15500615 (Version 1)
Quarter: 2018Q4

REPORT INFORMATION
  Report Type: Spontaneous
  Country: US (occurrence: US)
  Receive Date: 20181015
  Receipt Date: 20181015
  Transmission Date: 20190205
  Serious: Yes (Death, Hospitalization)
  Sender: FDA-Public Use
  Company Number: None

PATIENT
  Age: 69 Year
  Sex: Male
  Weight: 89 kg

DRUGS (1)
  1. COPANLISIB. [Suspect]
     Active Substance: COPANLISIB
     Indication: FOLLICLE CENTRE LYMPHOMA, FOLLICULAR GRADE I, II, III
     Route: 041
     Dates: start: 20180829, end: 20180829

REACTIONS (5)
  - Chest pain [None]
  - Cardiac arrest [None]
  - Pulse absent [None]
  - Brain injury [None]
  - Fall [None]

NARRATIVE: CASE EVENT DATE: 20180829
